FAERS Safety Report 5398086-3 (Version None)
Quarter: 2007Q3

REPORT INFORMATION
  Report Type: 
  Country: None (occurrence: None)
  Receive Date: 20070726
  Receipt Date: 20070716
  Transmission Date: 20080115
  Serious: Yes (Other)
  Sender: FDA-Public Use
  Company Number: US-AMGEN-US232368

PATIENT
  Sex: Female
  Weight: 98.5 kg

DRUGS (3)
  1. ENBREL [Suspect]
     Indication: RHEUMATOID ARTHRITIS
     Route: 058
     Dates: start: 20051001, end: 20061001
  2. PROZAC [Concomitant]
     Route: 065
  3. ADVIL LIQUI-GELS [Concomitant]
     Route: 065

REACTIONS (2)
  - CONGENITAL ANOMALY IN OFFSPRING [None]
  - PREMATURE BABY [None]
